FAERS Safety Report 17185125 (Version 1)
Quarter: 2019Q4

REPORT INFORMATION
  Report Type: Spontaneous
  Country: JP (occurrence: JP)
  Receive Date: 20191220
  Receipt Date: 20191220
  Transmission Date: 20200122
  Serious: Yes (Hospitalization, Other)
  Sender: FDA-Public Use
  Company Number: JP-APOTEX-2019AP026290

PATIENT
  Age: 7 Decade

DRUGS (3)
  1. PAXIL [Suspect]
     Active Substance: PAROXETINE HYDROCHLORIDE
     Indication: DEPRESSION
     Dosage: UNK
     Route: 048
  2. AMITRIPTYLINE HYDROCHLORIDE. [Suspect]
     Active Substance: AMITRIPTYLINE HYDROCHLORIDE
     Indication: DEPRESSION
     Dosage: UNK
     Route: 048
  3. LITHIUM CARBONATE. [Concomitant]
     Active Substance: LITHIUM CARBONATE
     Indication: DEPRESSION
     Dosage: UNK
     Route: 048

REACTIONS (9)
  - Weight decreased [Unknown]
  - Delusion [Recovering/Resolving]
  - Gait disturbance [Unknown]
  - Stress cardiomyopathy [Unknown]
  - Suicidal ideation [Unknown]
  - Feeling guilty [Unknown]
  - Condition aggravated [Unknown]
  - Depression [Recovering/Resolving]
  - Ventricular extrasystoles [Recovered/Resolved]
